FAERS Safety Report 9596771 (Version 2)
Quarter: 2013Q4

REPORT INFORMATION
  Report Type: Spontaneous
  Country: TW (occurrence: TW)
  Receive Date: 20131004
  Receipt Date: 20131022
  Transmission Date: 20140711
  Serious: Yes (Life-Threatening, Other)
  Sender: FDA-Public Use
  Company Number: TW-ROCHE-1284075

PATIENT
  Age: 56 Year
  Sex: Female

DRUGS (1)
  1. ALTEPLASE [Suspect]
     Indication: ISCHAEMIC STROKE
     Dosage: FOR 150 MIN
     Route: 040
     Dates: start: 201206

REACTIONS (3)
  - Respiratory distress [Unknown]
  - Haemorrhagic transformation stroke [Unknown]
  - Cyanosis [Unknown]
